FAERS Safety Report 14939505 (Version 7)
Quarter: 2018Q3

REPORT INFORMATION
  Report Type: Spontaneous
  Country: US (occurrence: US)
  Receive Date: 20180525
  Receipt Date: 20180928
  Transmission Date: 20181010
  Serious: No
  Sender: FDA-Public Use
  Company Number: US-PFIZER INC-2018209671

PATIENT
  Age: 35 Year
  Sex: Female

DRUGS (3)
  1. DAPTOMYCIN. [Suspect]
     Active Substance: DAPTOMYCIN
     Indication: STAPHYLOCOCCAL ABSCESS
     Dosage: 380 MG, 1X/DAY
     Route: 042
     Dates: start: 20180421, end: 20180421
  2. TOPAMAX [Concomitant]
     Active Substance: TOPIRAMATE
     Dosage: 50 MG, 1X/DAY
  3. ACETAMINOPHEN. [Concomitant]
     Active Substance: ACETAMINOPHEN
     Dosage: UNK

REACTIONS (9)
  - Vomiting [Unknown]
  - Headache [Recovered/Resolved]
  - Nausea [Unknown]
  - Chills [Unknown]
  - Temperature intolerance [Unknown]
  - Dyspnoea [Unknown]
  - Tremor [Unknown]
  - Chest discomfort [Recovered/Resolved]
  - Diarrhoea [Recovered/Resolved]

NARRATIVE: CASE EVENT DATE: 20180421
